FAERS Safety Report 23755760 (Version 1)
Quarter: 2024Q2

REPORT INFORMATION
  Report Type: Other
  Country: CH (occurrence: CH)
  Receive Date: 20240418
  Receipt Date: 20240418
  Transmission Date: 20240716
  Serious: Yes (Other)
  Sender: FDA-Public Use
  Company Number: CH-ALVOGEN-2020-ALVOGEN-107881

PATIENT
  Age: 73 Year
  Sex: Male

DRUGS (5)
  1. CLINDAMYCIN [Suspect]
     Active Substance: CLINDAMYCIN
     Indication: Escherichia bacteraemia
  2. CEFTRIAXONE [Suspect]
     Active Substance: CEFTRIAXONE\CEFTRIAXONE SODIUM
     Indication: Escherichia bacteraemia
  3. METRONIDAZOLE [Suspect]
     Active Substance: METRONIDAZOLE
     Indication: Escherichia bacteraemia
  4. ERTAPENEM [Suspect]
     Active Substance: ERTAPENEM
     Indication: Escherichia bacteraemia
  5. ONDANSETRON [Concomitant]
     Active Substance: ONDANSETRON
     Indication: Product used for unknown indication

REACTIONS (10)
  - Vitamin B1 deficiency [Unknown]
  - Decreased appetite [Unknown]
  - Weight decreased [Unknown]
  - Malnutrition [Unknown]
  - Dizziness [Recovered/Resolved]
  - Ataxia [Recovered/Resolved]
  - Vision blurred [Recovered/Resolved]
  - Nystagmus [Not Recovered/Not Resolved]
  - Vestibular disorder [Not Recovered/Not Resolved]
  - Nausea [Unknown]
